FAERS Safety Report 8214059-7 (Version None)
Quarter: 2012Q1

REPORT INFORMATION
  Report Type: 
  Country: None (occurrence: None)
  Receive Date: 20120314
  Receipt Date: 20120314
  Transmission Date: 20120608
  Serious: Yes (Hospitalization)
  Sender: FDA-Public Use
  Company Number: None

PATIENT
  Age: 60 Year
  Sex: Male
  Weight: 87.2 kg

DRUGS (3)
  1. BENICAR HCT [Concomitant]
  2. CISPLATIN [Suspect]
     Indication: HEAD AND NECK CANCER
     Dosage: 224 MG Q3WK IVPB RECENT
     Route: 042
  3. CELEBREX [Concomitant]

REACTIONS (10)
  - NEUTROPENIA [None]
  - NEUROPATHY PERIPHERAL [None]
  - PNEUMONIA [None]
  - POLYDIPSIA [None]
  - HYPONATRAEMIA [None]
  - RADIATION MUCOSITIS [None]
  - RENAL FAILURE ACUTE [None]
  - ASTHENIA [None]
  - INAPPROPRIATE ANTIDIURETIC HORMONE SECRETION [None]
  - DEHYDRATION [None]
